FAERS Safety Report 12753911 (Version 1)
Quarter: 2016Q3

REPORT INFORMATION
  Report Type: Spontaneous
  Country: US (occurrence: US)
  Receive Date: 20160915
  Receipt Date: 20160915
  Transmission Date: 20161109
  Serious: No
  Sender: FDA-Public Use
  Company Number: US-ALLERGAN-1661393US

PATIENT
  Age: 72 Year
  Sex: Female

DRUGS (5)
  1. VIBERZI [Suspect]
     Active Substance: ELUXADOLINE
     Dosage: 100 MG, PRN
     Route: 048
     Dates: start: 201605
  2. XANAX [Concomitant]
     Active Substance: ALPRAZOLAM
     Indication: PRODUCT USED FOR UNKNOWN INDICATION
  3. VIBERZI [Suspect]
     Active Substance: ELUXADOLINE
     Indication: IRRITABLE BOWEL SYNDROME
     Dosage: 50 MG, BID
     Route: 048
     Dates: start: 201603
  4. VIBERZI [Suspect]
     Active Substance: ELUXADOLINE
     Dosage: 100 MG, BID
     Route: 048
     Dates: start: 201605
  5. OXYGEN. [Concomitant]
     Active Substance: OXYGEN
     Indication: PRODUCT USED FOR UNKNOWN INDICATION

REACTIONS (8)
  - Off label use [Unknown]
  - Abdominal pain upper [Unknown]
  - Gastrointestinal pain [Not Recovered/Not Resolved]
  - Constipation [Recovered/Resolved]
  - Inflammation [Not Recovered/Not Resolved]
  - Nausea [Unknown]
  - Wrong technique in product usage process [Unknown]
  - Diarrhoea [Unknown]
